FAERS Safety Report 6983582-5 (Version None)
Quarter: 2010Q3

REPORT INFORMATION
  Report Type: 
  Country: None (occurrence: None)
  Receive Date: 20100914
  Receipt Date: 20081117
  Transmission Date: 20110219
  Serious: No
  Sender: FDA-Public Use
  Company Number: US-WYE-H06380008

PATIENT
  Age: 35 Year
  Sex: Female
  Weight: 68.1 kg

DRUGS (1)
  1. ADVIL LIQUI-GELS [Suspect]
     Indication: HEADACHE
     Dosage: 3 CAPSULES ONCE
     Route: 048
     Dates: start: 20081009, end: 20081009

REACTIONS (4)
  - CONSTIPATION [None]
  - DRUG ADMINISTRATION ERROR [None]
  - DRUG INEFFECTIVE [None]
  - NAUSEA [None]
